FAERS Safety Report 20375598 (Version 1)
Quarter: 2022Q1

REPORT INFORMATION
  Report Type: Spontaneous
  Country: CA (occurrence: CA)
  Receive Date: 20220125
  Receipt Date: 20220125
  Transmission Date: 20220424
  Serious: Yes (Hospitalization)
  Sender: FDA-Public Use
  Company Number: CA-TEVA-2022-CA-2001274

PATIENT
  Age: 49 Year
  Sex: Male

DRUGS (10)
  1. AMLODIPINE [Suspect]
     Active Substance: AMLODIPINE BESYLATE
  2. PROPRANOLOL [Suspect]
     Active Substance: PROPRANOLOL HYDROCHLORIDE
     Route: 065
  3. QUETIAPINE [Suspect]
     Active Substance: QUETIAPINE
     Route: 065
  4. QUETIAPINE [Suspect]
     Active Substance: QUETIAPINE
     Route: 065
  5. LAMOTRIGINE [Suspect]
     Active Substance: LAMOTRIGINE
  6. BUPROPION HYDROCHLORIDE [Suspect]
     Active Substance: BUPROPION HYDROCHLORIDE
     Route: 065
  7. BUPROPION HYDROCHLORIDE [Suspect]
     Active Substance: BUPROPION HYDROCHLORIDE
     Route: 065
  8. DEXILANT [Concomitant]
     Active Substance: DEXLANSOPRAZOLE
     Route: 065
  9. PRO-ZOPICLONE [Concomitant]
     Route: 065
  10. SYNTHROID TAB 25MCG [Concomitant]

REACTIONS (9)
  - Altered state of consciousness [Unknown]
  - Blood lactic acid increased [Unknown]
  - Blood pressure systolic decreased [Unknown]
  - Bradycardia [Unknown]
  - Coma scale abnormal [Unknown]
  - Hypotension [Unknown]
  - Intentional overdose [Unknown]
  - Poisoning deliberate [Unknown]
  - Respiratory acidosis [Unknown]
